FAERS Safety Report 9517866 (Version 1)
Quarter: 2013Q1

REPORT INFORMATION
  Report Type: Spontaneous
  Country: US (occurrence: None)
  Receive Date: 20130305
  Receipt Date: 20130305
  Transmission Date: 20140127
  Serious: Yes (Hospitalization)
  Sender: FDA-Public Use
  Company Number: 163-21880-12012041

PATIENT
  Age: 83 Year
  Sex: Male

DRUGS (10)
  1. REVLIMID [Suspect]
     Indication: PLASMA CELL MYELOMA
     Dosage: DAILY X 21 DAYS/OFF 7 DAYS
     Route: 048
     Dates: start: 20100506
  2. PLAVIX (CLOPIDOGREL SULFATE) [Concomitant]
  3. DYAZIDE (DYAZIDE) [Concomitant]
  4. METFORMIN (METFORMIN) [Concomitant]
  5. METOPROLOL (METPROLOL) [Concomitant]
  6. MS CONTIN [Concomitant]
  7. MS ROXANOL (MORPHINE SULFATE) [Concomitant]
  8. SIMVASTATIN (SIMVASTATIN) [Concomitant]
  9. FLUIDS [Concomitant]
  10. IBUPROFEN (IBUPROFEN) [Concomitant]

REACTIONS (2)
  - Hypokalaemia [None]
  - Renal failure acute [None]
